FAERS Safety Report 16375162 (Version 3)
Quarter: 2019Q2

REPORT INFORMATION
  Report Type: Spontaneous
  Country: US (occurrence: US)
  Receive Date: 20190531
  Receipt Date: 20190606
  Transmission Date: 20190711
  Serious: No
  Sender: FDA-Public Use
  Company Number: US-JNJFOC-20190518759

PATIENT
  Age: 16 Year
  Sex: Female

DRUGS (1)
  1. TYLENOL EXTRA STRENGTH [Suspect]
     Active Substance: ACETAMINOPHEN
     Indication: PRODUCT USED FOR UNKNOWN INDICATION
     Dosage: HALF CAPLET (THESE SHOULDN^T BE BROKEN UP, AND TWO FULL CAPLETS IS THE RECOMMENDED DOSAGE)
     Route: 048

REACTIONS (1)
  - Incorrect dose administered [Unknown]
